FAERS Safety Report 17223226 (Version 1)
Quarter: 2020Q1

REPORT INFORMATION
  Report Type: Spontaneous
  Country: FR (occurrence: FR)
  Receive Date: 20200102
  Receipt Date: 20200102
  Transmission Date: 20200409
  Serious: Yes (Hospitalization)
  Sender: FDA-Public Use
  Company Number: FR-ACCORD-167955

PATIENT
  Age: 67 Year
  Sex: Female
  Weight: 56 kg

DRUGS (16)
  1. PANTOPRAZOLE [Concomitant]
     Active Substance: PANTOPRAZOLE
  2. PHLOROGLUCINOL [Concomitant]
     Active Substance: PHLOROGLUCINOL
  3. LORAZEPAM. [Concomitant]
     Active Substance: LORAZEPAM
  4. MOVICOL [Concomitant]
     Active Substance: POLYETHYLENE GLYCOL 3350\POTASSIUM CHLORIDE\SODIUM BICARBONATE\SODIUM CHLORIDE
  5. PARACETAMOL [Concomitant]
     Active Substance: ACETAMINOPHEN
  6. BENDAMUSTINE ACCORD [Suspect]
     Active Substance: BENDAMUSTINE
     Indication: PLASMA CELL MYELOMA
     Route: 041
  7. NEOFORDEX [Suspect]
     Active Substance: DEXAMETHASONE ACETATE
     Indication: PLASMA CELL MYELOMA
     Dosage: STRENGTH:40 MG
     Route: 048
  8. KARDEGIC [Concomitant]
     Active Substance: ASPIRIN DL-LYSINE
  9. ZIEXTENZO [Suspect]
     Active Substance: PEGFILGRASTIM-BMEZ
     Indication: BLOOD DISORDER PROPHYLAXIS
     Dosage: STRENGTH: 6 MG
     Route: 041
     Dates: start: 20191030, end: 20191030
  10. LEVOTHYROXINE. [Concomitant]
     Active Substance: LEVOTHYROXINE
  11. ONDANSETRON [Suspect]
     Active Substance: ONDANSETRON
     Indication: PLASMA CELL MYELOMA
     Dosage: STRENGTH:8 MG/ 4 ML
     Route: 041
  12. BORTEZOMIBE [Suspect]
     Active Substance: BORTEZOMIB
     Indication: PLASMA CELL MYELOMA
     Dosage: STRENGTH: 2.5 MG/ ML
     Route: 058
  13. GAVISCON [Concomitant]
     Active Substance: ALUMINUM HYDROXIDE\MAGNESIUM CARBONATE
  14. CLOMIPRAMINE [Concomitant]
     Active Substance: CLOMIPRAMINE
  15. ACETORPHAN [Concomitant]
     Active Substance: RACECADOTRIL
  16. VALACICLOVIR [Concomitant]
     Active Substance: VALACYCLOVIR HYDROCHLORIDE

REACTIONS (1)
  - Acute febrile neutrophilic dermatosis [Recovered/Resolved]

NARRATIVE: CASE EVENT DATE: 20191103
